FAERS Safety Report 14494310 (Version 1)
Quarter: 2018Q1

REPORT INFORMATION
  Report Type: Spontaneous
  Country: GB (occurrence: GB)
  Receive Date: 20180206
  Receipt Date: 20180206
  Transmission Date: 20180509
  Serious: Yes (Other)
  Sender: FDA-Public Use
  Company Number: GB-MYLANLABS-2018M1008075

PATIENT
  Age: 52 Year
  Sex: Male
  Weight: 97.9 kg

DRUGS (2)
  1. IBUPROFEN. [Suspect]
     Active Substance: IBUPROFEN
     Indication: ANALGESIC THERAPY
     Dosage: 6 DF, QD
     Route: 048
     Dates: start: 20180104, end: 20180108
  2. SUDAFED BLOCKED NOSE [Concomitant]
     Indication: SINUS CONGESTION
     Route: 045

REACTIONS (3)
  - Insomnia [Recovering/Resolving]
  - Tinnitus [Not Recovered/Not Resolved]
  - Anxiety [Recovering/Resolving]

NARRATIVE: CASE EVENT DATE: 20180105
